FAERS Safety Report 8887513 (Version 1)
Quarter: 2012Q4

REPORT INFORMATION
  Report Type: Spontaneous
  Country: CZ (occurrence: None)
  Receive Date: 20121031
  Receipt Date: 20121031
  Transmission Date: 20130627
  Serious: Yes (Other)
  Sender: FDA-Public Use
  Company Number: CZ-025166

PATIENT

DRUGS (3)
  1. BUSULFAN [Suspect]
     Indication: STEM CELL TRANSPLANT
     Route: 048
  2. FLUDARABINE [Suspect]
     Indication: STEM CELL TRANSPLANT
     Dosage: 30 mg/m2/day on days -10 to -5 on days -10  to -5 (30 mg/m2, 1 in 1 days), Intravenous (not otherwise specified)
     Route: 042
  3. ANTITHYMOCYTE GLOBULIN [Suspect]
     Indication: STEM CELL TRANSPLANT
     Dosage: 10 mg/kg (10 mg/kg, 1 in 1 days

REACTIONS (1)
  - Cardiotoxicity [None]
